FAERS Safety Report 5512733-4 (Version None)
Quarter: 2007Q4

REPORT INFORMATION
  Report Type: 
  Country: None (occurrence: None)
  Receive Date: 20071108
  Receipt Date: 20071029
  Transmission Date: 20080405
  Serious: Yes (Hospitalization)
  Sender: FDA-Public Use
  Company Number: 60890

PATIENT
  Age: 81 Year
  Sex: Female
  Weight: 44.9061 kg

DRUGS (6)
  1. MINOXIDIL [Suspect]
     Indication: ALOPECIA
     Dosage: 1ML/DAILY/TOPICAL
     Route: 061
     Dates: start: 20061001
  2. FISHI OIL [Concomitant]
  3. ACTONEL [Concomitant]
  4. ZOCOR [Concomitant]
  5. ASTHMA INHALER [Concomitant]
  6. ENSURE SUPPLEMENT [Concomitant]

REACTIONS (3)
  - ALOPECIA [None]
  - SINUSITIS [None]
  - WEIGHT DECREASED [None]
